FAERS Safety Report 25913139 (Version 1)
Quarter: 2025Q4

REPORT INFORMATION
  Report Type: Spontaneous
  Country: EU (occurrence: EU)
  Receive Date: 20251013
  Receipt Date: 20251013
  Transmission Date: 20260118
  Serious: Yes (Hospitalization)
  Sender: MYLAN
  Company Number: EU-ARENA-2025-00190

PATIENT
  Age: 77 Year
  Sex: Male

DRUGS (4)
  1. ATORVASTATIN [Suspect]
     Active Substance: ATORVASTATIN
     Indication: Dyslipidaemia
     Dosage: 20 MILLIGRAM, QD
  2. ASPIRIN [Concomitant]
     Active Substance: ASPIRIN
     Indication: Product used for unknown indication
     Dosage: 75 MILLIGRAM, QD
  3. NEBIVOLOL [Concomitant]
     Active Substance: NEBIVOLOL
     Indication: Hypertension
     Dosage: 5 MILLIGRAM, QD
  4. CANDESARTAN [Concomitant]
     Active Substance: CANDESARTAN
     Indication: Hypertension
     Dosage: 8 MILLIGRAM, QD

REACTIONS (4)
  - Dyspnoea [Recovered/Resolved]
  - Fatigue [Recovered/Resolved]
  - Oedema peripheral [Recovered/Resolved]
  - Blood pressure increased [Unknown]
